FAERS Safety Report 5626283-8 (Version None)
Quarter: 2008Q1

REPORT INFORMATION
  Report Type: 
  Country: None (occurrence: None)
  Receive Date: 20080214
  Receipt Date: 20080205
  Transmission Date: 20080703
  Serious: Yes (Death, Other)
  Sender: FDA-Public Use
  Company Number: US-ELI_LILLY_AND_COMPANY-US200802001158

PATIENT
  Age: 57 Year
  Sex: Female

DRUGS (4)
  1. XIGRIS [Suspect]
     Indication: SEPSIS
     Dosage: 24 UG/KG EVERY HOUR
     Dates: start: 20071201, end: 20071201
  2. LEVOPHED [Concomitant]
     Dates: start: 20071201
  3. VASOPRESSIN [Concomitant]
     Dates: start: 20071201
  4. OXYGEN [Concomitant]
     Dates: start: 20071201

REACTIONS (2)
  - CEREBRAL HAEMORRHAGE [None]
  - DISSEMINATED INTRAVASCULAR COAGULATION [None]
